FAERS Safety Report 4830249-5 (Version None)
Quarter: 2005Q4

REPORT INFORMATION
  Report Type: 
  Country: None (occurrence: None)
  Receive Date: 20051117
  Receipt Date: 20030714
  Transmission Date: 20060501
  Serious: Yes (Other)
  Sender: FDA-Public Use
  Company Number: IT-GLAXOSMITHKLINE-B0304465A

PATIENT
  Age: 52 Year
  Sex: Female
  Weight: 65 kg

DRUGS (2)
  1. PLACEBO [Suspect]
     Indication: HEPATITIS B
     Route: 048
     Dates: start: 19991111, end: 20000119
  2. WELLFERON [Suspect]
     Indication: HEPATITIS B
     Dosage: 6MU THREE TIMES PER WEEK

REACTIONS (2)
  - LEUKOPENIA [None]
  - WHITE BLOOD CELL COUNT DECREASED [None]
